FAERS Safety Report 15450685 (Version 1)
Quarter: 2018Q4

REPORT INFORMATION
  Report Type: Spontaneous
  Country: CO (occurrence: CO)
  Receive Date: 20181001
  Receipt Date: 20181001
  Transmission Date: 20190204
  Serious: Yes (Death)
  Sender: FDA-Public Use
  Company Number: PHHY2018CO110740

PATIENT
  Age: 29 Year
  Sex: Female
  Weight: 50 kg

DRUGS (1)
  1. RYDAPT [Suspect]
     Active Substance: MIDOSTAURIN
     Indication: ACUTE MYELOID LEUKAEMIA
     Dosage: 25 MG,EVERY 12 HOURS
     Route: 048
     Dates: start: 20180904, end: 20180906

REACTIONS (2)
  - Febrile neutropenia [Fatal]
  - Neutropenic colitis [Fatal]

NARRATIVE: CASE EVENT DATE: 20180907
